FAERS Safety Report 7597209-5 (Version None)
Quarter: 2011Q3

REPORT INFORMATION
  Report Type: 
  Country: None (occurrence: None)
  Receive Date: 20110708
  Receipt Date: 20100917
  Transmission Date: 20111222
  Serious: No
  Sender: FDA-Public Use
  Company Number: US-GLAXOSMITHKLINE-A0881681A

PATIENT
  Age: 75 Year
  Sex: Male

DRUGS (7)
  1. FLOVENT [Suspect]
     Indication: ASTHMA
     Dosage: 1SPR TWICE PER DAY
     Route: 055
     Dates: start: 20100701
  2. ROBITUSSIN EXPECTORANT [Concomitant]
  3. ALBUTEROL SULFATE AUTOHALER [Concomitant]
  4. ATENOLOL [Concomitant]
  5. ZYRTEC [Concomitant]
  6. ASPIRIN [Concomitant]
  7. FLONASE [Concomitant]

REACTIONS (2)
  - SALIVA ALTERED [None]
  - DRY MOUTH [None]
